FAERS Safety Report 6270911-3 (Version None)
Quarter: 2009Q3

REPORT INFORMATION
  Report Type: 
  Country: None (occurrence: None)
  Receive Date: 20090716
  Receipt Date: 20090708
  Transmission Date: 20100115
  Serious: Yes (Hospitalization)
  Sender: FDA-Public Use
  Company Number: PHHO2009JP06705

PATIENT
  Sex: Male
  Weight: 67 kg

DRUGS (10)
  1. ALISKIREN ALI+TAB+CVR [Suspect]
     Indication: CARDIOVASCULAR DISORDER
     Dosage: UNK
     Route: 048
     Dates: start: 20080806
  2. ALISKIREN ALI+TAB+CVR [Suspect]
     Dosage: CODE NOT BROKEN
     Dates: start: 20080903, end: 20090513
  3. NATEGLINIDE [Concomitant]
     Indication: DIABETES MELLITUS
  4. GLUCOBAY [Concomitant]
     Indication: TYPE 2 DIABETES MELLITUS
  5. ACTOS [Concomitant]
     Indication: TYPE 2 DIABETES MELLITUS
  6. MICARDIS [Concomitant]
  7. NORVASC [Concomitant]
  8. CARDENALIN [Concomitant]
  9. ASTAT [Concomitant]
  10. TAKEPRON [Concomitant]
     Indication: GASTRIC ULCER

REACTIONS (15)
  - ACUTE RESPIRATORY DISTRESS SYNDROME [None]
  - ANTINUCLEAR ANTIBODY POSITIVE [None]
  - ARTHRALGIA [None]
  - COUGH [None]
  - DERMATOMYOSITIS [None]
  - DISSEMINATED INTRAVASCULAR COAGULATION [None]
  - DYSPNOEA [None]
  - IMMOBILISATION PROLONGED [None]
  - INTERSTITIAL LUNG DISEASE [None]
  - LYMPHOMA [None]
  - MUSCLE ATROPHY [None]
  - PALPITATIONS [None]
  - PNEUMONIA [None]
  - SWELLING [None]
  - SYSTEMIC INFLAMMATORY RESPONSE SYNDROME [None]
